FAERS Safety Report 6945428-0 (Version None)
Quarter: 2010Q3

REPORT INFORMATION
  Report Type: 
  Country: None (occurrence: None)
  Receive Date: 20100827
  Receipt Date: 20100820
  Transmission Date: 20110219
  Serious: Yes (Other)
  Sender: FDA-Public Use
  Company Number: US-ROCHE-717843

PATIENT
  Sex: Female
  Weight: 85.3 kg

DRUGS (6)
  1. ACTEMRA [Suspect]
     Indication: RHEUMATOID ARTHRITIS
     Dosage: FORM- INFUSION
     Route: 042
  2. ARAVA [Concomitant]
     Route: 048
     Dates: start: 20090701
  3. DIOVAN [Concomitant]
     Route: 048
  4. CARDIZEM [Concomitant]
     Route: 048
  5. HYDROCHLOROTHIAZIDE [Concomitant]
     Route: 048
  6. MOTRIN [Concomitant]
     Route: 048

REACTIONS (3)
  - BLOOD PRESSURE DECREASED [None]
  - CHILLS [None]
  - HEADACHE [None]
